FAERS Safety Report 5454539-0 (Version None)
Quarter: 2007Q3

REPORT INFORMATION
  Report Type: 
  Country: None (occurrence: None)
  Receive Date: 20070917
  Receipt Date: 20060815
  Transmission Date: 20080115
  Serious: No
  Sender: FDA-Public Use
  Company Number: US-ASTRAZENECA-2006UW16150

PATIENT
  Sex: Female

DRUGS (5)
  1. SEROQUEL [Suspect]
     Route: 048
  2. INSULIN [Concomitant]
     Dates: start: 20030101
  3. CHOLESTEROL-LOWERING DRUG [Concomitant]
     Dates: start: 20030101
  4. HIGH BLOOD PRESSURE DRUG [Concomitant]
  5. THYROID DRUG [Concomitant]
     Dates: start: 20030101

REACTIONS (2)
  - FATIGUE [None]
  - SOMNOLENCE [None]
